FAERS Safety Report 6762291-1 (Version None)
Quarter: 2010Q2

REPORT INFORMATION
  Report Type: 
  Country: None (occurrence: None)
  Receive Date: 20100609
  Receipt Date: 20100528
  Transmission Date: 20101027
  Serious: Yes (Hospitalization)
  Sender: FDA-Public Use
  Company Number: GB-TEVA-236396ISR

PATIENT
  Sex: Female

DRUGS (1)
  1. METOPROLOL TARTRATE [Suspect]
     Route: 048

REACTIONS (8)
  - BLOOD PRESSURE DECREASED [None]
  - BRADYCARDIA [None]
  - CARDIAC ARREST [None]
  - ELECTROCARDIOGRAM T WAVE INVERSION [None]
  - HYPOXIA [None]
  - METABOLIC ACIDOSIS [None]
  - RESPIRATORY ALKALOSIS [None]
  - SUPRAVENTRICULAR TACHYCARDIA [None]
